FAERS Safety Report 8105704-5 (Version None)
Quarter: 2012Q1

REPORT INFORMATION
  Report Type: 
  Country: None (occurrence: None)
  Receive Date: 20120201
  Receipt Date: 20120123
  Transmission Date: 20120608
  Serious: Yes (Other)
  Sender: FDA-Public Use
  Company Number: ES-GILEAD-2012-0049705

PATIENT
  Age: 53 Year
  Sex: Male

DRUGS (6)
  1. ANGIOTENSIN-CONVERTING-ENZYME INHIBITOR [Concomitant]
     Dosage: UNK
  2. VIREAD [Suspect]
     Indication: HEPATITIS B
     Dosage: UNK
     Dates: start: 20100101
  3. HEPSERA [Concomitant]
     Indication: HEPATITIS B
  4. ORAL ANTI-DIABETES DRUGS [Concomitant]
     Indication: DIABETES MELLITUS
     Dosage: UNK
  5. HYPOLIPIDEMIC DRUG [Concomitant]
     Indication: PRODUCT USED FOR UNKNOWN INDICATION
     Dosage: UNK
  6. INSULIN [Concomitant]
     Indication: DIABETES MELLITUS
     Dosage: UNK

REACTIONS (3)
  - OSTEOPOROSIS [None]
  - FRACTURE [None]
  - FANCONI SYNDROME ACQUIRED [None]
